FAERS Safety Report 6450772-X (Version None)
Quarter: 2009Q4

REPORT INFORMATION
  Report Type: 
  Country: None (occurrence: None)
  Receive Date: 20091123
  Receipt Date: 20091117
  Transmission Date: 20100525
  Serious: Yes (Other)
  Sender: FDA-Public Use
  Company Number: US-GENENTECH-294534

PATIENT
  Sex: Male
  Weight: 67.6 kg

DRUGS (2)
  1. AVASTIN [Suspect]
     Indication: COLORECTAL CANCER METASTATIC
     Dosage: 5 MG/KG, Q2W
     Route: 042
     Dates: start: 20061006
  2. AVASTIN [Suspect]
     Dosage: 5 MG/KG, Q2W
     Route: 042
     Dates: start: 20090601, end: 20090909

REACTIONS (1)
  - GASTROINTESTINAL DISORDER [None]
